FAERS Safety Report 20069579 (Version 1)
Quarter: 2021Q4

REPORT INFORMATION
  Report Type: Spontaneous
  Country: US (occurrence: US)
  Receive Date: 20211115
  Receipt Date: 20211115
  Transmission Date: 20220303
  Serious: No
  Sender: FDA-Public Use
  Company Number: US-OptiNose US, Inc-2021OPT000072

PATIENT
  Age: 39 Year
  Sex: Female

DRUGS (1)
  1. XHANCE [Suspect]
     Active Substance: FLUTICASONE PROPIONATE
     Indication: Chronic sinusitis
     Route: 045

REACTIONS (3)
  - Cough [Unknown]
  - Malaise [Unknown]
  - Product use in unapproved indication [Unknown]
